FAERS Safety Report 8064642-7 (Version None)
Quarter: 2012Q1

REPORT INFORMATION
  Report Type: 
  Country: None (occurrence: None)
  Receive Date: 20120123
  Receipt Date: 20120117
  Transmission Date: 20120608
  Serious: Yes (Life-Threatening)
  Sender: FDA-Public Use
  Company Number: GR-ASTRAZENECA-2012SE03387

PATIENT

DRUGS (3)
  1. MIDAZOLAM HYDROCHLORIDE [Suspect]
     Indication: SEDATION
     Dosage: 0.1-0.2 MG/KG/DOSE
     Route: 042
  2. OXYGEN [Concomitant]
  3. PROPOFOL [Suspect]
     Indication: SEDATION
     Dosage: 2 MG/KG/DOSE
     Route: 042

REACTIONS (1)
  - RESPIRATORY ARREST [None]
